FAERS Safety Report 11228438 (Version 4)
Quarter: 2015Q4

REPORT INFORMATION
  Report Type: Spontaneous
  Country: JP (occurrence: JP)
  Receive Date: 20150630
  Receipt Date: 20151119
  Transmission Date: 20160304
  Serious: Yes (Hospitalization)
  Sender: FDA-Public Use
  Company Number: JP-ALLERGAN-1512297US

PATIENT
  Age: 55 Year
  Sex: Male

DRUGS (9)
  1. ARTIST [Concomitant]
     Active Substance: CARVEDILOL
     Dosage: UNK
     Dates: start: 201503
  2. MICAMLO [Concomitant]
     Active Substance: AMLODIPINE BESYLATE\TELMISARTAN
     Dosage: UNK
  3. BOTOX [Suspect]
     Active Substance: ONABOTULINUMTOXINA
     Indication: TORTICOLLIS
     Dosage: 100 UNITS, SINGLE
     Route: 030
     Dates: start: 201503, end: 201503
  4. BOTOX [Suspect]
     Active Substance: ONABOTULINUMTOXINA
     Dosage: 100 UNITS, SINGLE
     Route: 030
     Dates: start: 20150507, end: 20150507
  5. BOTOX [Suspect]
     Active Substance: ONABOTULINUMTOXINA
     Dosage: 50 UNITS, SINGLE
     Route: 030
     Dates: start: 20120919, end: 20120919
  6. MICARDIS [Concomitant]
     Active Substance: TELMISARTAN
     Indication: PRODUCT USED FOR UNKNOWN INDICATION
     Dosage: UNK
  7. AMLODIPINE [Concomitant]
     Active Substance: AMLODIPINE BESYLATE
     Indication: PRODUCT USED FOR UNKNOWN INDICATION
     Dosage: UNK
  8. BOTOX [Suspect]
     Active Substance: ONABOTULINUMTOXINA
     Dosage: 100 UNITS, SINGLE
     Route: 030
     Dates: start: 2013, end: 2013
  9. DEPAS [Concomitant]
     Active Substance: ETIZOLAM
     Dosage: UNK

REACTIONS (9)
  - Localised oedema [Not Recovered/Not Resolved]
  - Hypersensitivity [Recovering/Resolving]
  - Pain [Recovering/Resolving]
  - Localised oedema [Recovered/Resolved]
  - Oedema peripheral [Recovered/Resolved]
  - Muscle tightness [Not Recovered/Not Resolved]
  - Local swelling [Unknown]
  - Oedema peripheral [Recovered/Resolved]
  - Erythema [Recovered/Resolved]

NARRATIVE: CASE EVENT DATE: 201504
